FAERS Safety Report 7097234-7 (Version None)
Quarter: 2010Q4

REPORT INFORMATION
  Report Type: 
  Country: None (occurrence: None)
  Receive Date: 20101111
  Receipt Date: 20101105
  Transmission Date: 20110411
  Serious: Yes (Life-Threatening)
  Sender: FDA-Public Use
  Company Number: JP-BAYER-201014460BYL

PATIENT
  Age: 81 Year
  Sex: Female
  Weight: 49 kg

DRUGS (14)
  1. NEXAVAR [Suspect]
     Indication: HEPATIC NEOPLASM MALIGNANT
     Dosage: UNIT DOSE: 200 MG
     Route: 048
     Dates: start: 20100817, end: 20100901
  2. MAGMITT [Concomitant]
     Indication: CONSTIPATION
     Dosage: UNIT DOSE: 250 MG
     Route: 048
     Dates: start: 20100728, end: 20100901
  3. OXYCONTIN [Concomitant]
     Indication: PAIN
     Route: 048
     Dates: start: 20100728, end: 20100830
  4. MUCODYNE [Concomitant]
     Indication: COUGH
     Dosage: UNIT DOSE: 250 MG
     Route: 048
     Dates: start: 20090401, end: 20100901
  5. MEDICON [Concomitant]
     Indication: COUGH
     Dosage: UNIT DOSE: 15 MG
     Route: 048
     Dates: start: 20090401, end: 20100901
  6. GLIMICRON [Concomitant]
     Indication: DIABETES MELLITUS
     Dosage: UNIT DOSE: 40 MG
     Route: 048
     Dates: end: 20100901
  7. URSO 250 [Concomitant]
     Dosage: UNIT DOSE: 100 MG
     Route: 048
     Dates: end: 20100901
  8. MEVALOTIN [Concomitant]
     Indication: HYPERLIPIDAEMIA
     Dosage: UNIT DOSE: 10 MG
     Route: 048
     Dates: end: 20100901
  9. ADALAT [Concomitant]
     Indication: HYPERTENSION
     Dosage: UNIT DOSE: 10 MG
     Route: 048
     Dates: end: 20100901
  10. CERCINE [Concomitant]
     Indication: SLEEP DISORDER
     Dosage: UNIT DOSE: 5 MG
     Route: 048
     Dates: end: 20100901
  11. LOXONIN [Concomitant]
     Indication: PAIN
     Dosage: UNIT DOSE: 60 MG
     Route: 048
     Dates: start: 20100706, end: 20100901
  12. LASIX [Concomitant]
     Indication: OEDEMA
     Dosage: UNIT DOSE: 20 MG
     Route: 048
     Dates: end: 20100901
  13. ALDACTONE [Concomitant]
     Indication: OEDEMA
     Dosage: UNIT DOSE: 25 MG
     Route: 048
     Dates: end: 20100901
  14. TAKEPRON [Concomitant]
     Indication: PAIN
     Dosage: UNIT DOSE: 15 MG
     Route: 048
     Dates: start: 20100706, end: 20100901

REACTIONS (4)
  - ATYPICAL MYCOBACTERIAL INFECTION [None]
  - MALAISE [None]
  - NAUSEA [None]
  - PNEUMONIA [None]
